FAERS Safety Report 5796604-4 (Version None)
Quarter: 2008Q3

REPORT INFORMATION
  Report Type: 
  Country: None (occurrence: None)
  Receive Date: 20080701
  Receipt Date: 20080619
  Transmission Date: 20090109
  Serious: Yes (Death)
  Sender: FDA-Public Use
  Company Number: JP-ROCHE-490156

PATIENT
  Age: 39 Year
  Sex: Male

DRUGS (8)
  1. TAMIFLU [Suspect]
     Dosage: TOOK TWO CAPSULES.
     Route: 065
     Dates: start: 20050225
  2. DIPYRONE [Concomitant]
     Route: 030
  3. LACTATED RINGER'S [Concomitant]
     Dosage: DRUG REPORTED AS MALTOSE-LACTATED RINGER'S SOLUTION. FORM: INFUSION.
  4. CEFPIROME SULFATE [Concomitant]
     Dosage: GIVEN OVER A COUPLE OF HOURS. FORM: INFUSION.
     Route: 042
  5. CEFCAPENE PIVOXIL [Concomitant]
     Dosage: DRUG REPORTED AS CEFCAPENE PIVOXIL HYDROCHLORIDE.
  6. NAPROXEN [Concomitant]
  7. AMBROXOL HYDROCHLORIDE [Concomitant]
  8. THROAT LOZENGES [Concomitant]

REACTIONS (2)
  - CARDIAC ARREST [None]
  - SUDDEN DEATH [None]
